FAERS Safety Report 5868249-9 (Version None)
Quarter: 2008Q3

REPORT INFORMATION
  Report Type: 
  Country: None (occurrence: None)
  Receive Date: 20080902
  Receipt Date: 20080825
  Transmission Date: 20090109
  Serious: Yes (Other)
  Sender: FDA-Public Use
  Company Number: FR-PFIZER INC-2008071584

PATIENT
  Sex: Female

DRUGS (2)
  1. TAHOR [Suspect]
  2. GRAPEFRUIT JUICE [Concomitant]

REACTIONS (2)
  - DEPRESSION [None]
  - VITREOUS DISORDER [None]
